FAERS Safety Report 6547922-3 (Version None)
Quarter: 2010Q1

REPORT INFORMATION
  Report Type: 
  Country: None (occurrence: None)
  Receive Date: 20100124
  Receipt Date: 20091120
  Transmission Date: 20100710
  Serious: No
  Sender: FDA-Public Use
  Company Number: US-ALEXION-A200900998

PATIENT
  Sex: Male

DRUGS (8)
  1. SOLIRIS [Suspect]
     Indication: PAROXYSMAL NOCTURNAL HAEMOGLOBINURIA
     Dosage: UNK
     Route: 042
     Dates: start: 20070101
  2. SOLIRIS [Suspect]
     Dosage: 1200 MG, Q 2 WEEKS
     Route: 042
     Dates: start: 20080404, end: 20090701
  3. SOLIRIS [Suspect]
     Dosage: 600 MG, Q WEEK FOR 3 WEEKS
     Route: 042
     Dates: start: 20090909
  4. FOLIC ACID [Concomitant]
     Dosage: 1 MG, QD
     Route: 048
  5. IRON [Concomitant]
     Dosage: 325 MG, QD
     Route: 048
  6. MULTIVITAMIN                       /00831701/ [Concomitant]
     Dosage: UNK
     Route: 048
  7. PREDNISONE [Concomitant]
     Dosage: 5 MG, BID
     Route: 048
  8. BACTRIM DS [Concomitant]
     Indication: PROPHYLAXIS
     Dosage: ONE WEEKLY
     Route: 048

REACTIONS (2)
  - HAEMOGLOBIN DECREASED [None]
  - NEUTROPHIL COUNT DECREASED [None]
